FAERS Safety Report 5904023-2 (Version None)
Quarter: 2008Q3

REPORT INFORMATION
  Report Type: 
  Country: None (occurrence: None)
  Receive Date: 20080919
  Receipt Date: 20080717
  Transmission Date: 20090109
  Serious: No
  Sender: FDA-Public Use
  Company Number: US-WYE-H05184508

PATIENT
  Sex: Female

DRUGS (1)
  1. PRISTIQ (DESVENLAFAXINE SUCCINATE MONOHYDRATE, ABLET, EXTENDED RELEASE [Suspect]
     Dosage: 50 MG

REACTIONS (1)
  - MEDICATION RESIDUE [None]
